FAERS Safety Report 9949400 (Version 4)
Quarter: 2014Q4

REPORT INFORMATION
  Report Type: Spontaneous
  Country: None (occurrence: None)
  Receive Date: 20140122
  Receipt Date: 20141202
  Transmission Date: 20150529
  Serious: Yes (Hospitalization, Other)
  Sender: FDA-Public Use
  Company Number: AEGR000181

PATIENT
  Age: 66 Year
  Sex: Female
  Weight: 102.5 kg

DRUGS (17)
  1. PHENERGAN [Concomitant]
     Active Substance: PROMETHAZINE HYDROCHLORIDE
  2. VITAMIN E (TOCOPHERYL ACETATE) [Concomitant]
  3. ANTIVERT (MECLOZINE HYDROCHLORIDE) [Concomitant]
  4. IRON (FERROUS SULFATE) [Concomitant]
  5. OMEGA 3 6 9 (OMEGA 9 FATTY ACIDS, OMEGA-3 FATTY ACIDS, OMEGA-6 FATTY ACIDS) [Concomitant]
  6. TIROSINT (LEVOTHYROXINE SODIUM) [Concomitant]
  7. CLONAZEPAM (CLONAZEPAM) [Concomitant]
  8. TRAZODONE HCL (TRAZODONE HYDROCHLORIDE) [Concomitant]
  9. VITAMIN D3 [Concomitant]
     Active Substance: CHOLECALCIFEROL
  10. JUXTAPID [Suspect]
     Active Substance: LOMITAPIDE MESYLATE
     Indication: TYPE IIA HYPERLIPIDAEMIA
     Route: 048
     Dates: start: 201310, end: 201410
  11. PREGNENOLONE (PREGNENOLOE) [Concomitant]
  12. MINOCYCLINE HCL (MINOCYCLINE HYDROCHLORIDE) [Concomitant]
  13. NATTOKINASE (NATTOKINASE) [Concomitant]
  14. OMEPRAZOLE (OMEPRAZOLE) [Concomitant]
     Active Substance: OMEPRAZOLE
  15. LIVALO (PITAVASTATIN CALCIUM) [Concomitant]
  16. LASIX [Concomitant]
     Active Substance: FUROSEMIDE
  17. LEXAPRO [Concomitant]
     Active Substance: ESCITALOPRAM OXALATE

REACTIONS (9)
  - Diarrhoea [None]
  - Alopecia [None]
  - Treatment noncompliance [None]
  - Nausea [None]
  - Migraine [None]
  - Rash [None]
  - Chest pain [None]
  - Clostridium difficile infection [None]
  - Disturbance in attention [None]

NARRATIVE: CASE EVENT DATE: 201310
